FAERS Safety Report 4972127-7 (Version None)
Quarter: 2006Q2

REPORT INFORMATION
  Report Type: 
  Country: None (occurrence: None)
  Receive Date: 20060413
  Receipt Date: 20060209
  Transmission Date: 20061013
  Serious: Yes (Hospitalization)
  Sender: FDA-Public Use
  Company Number: US-ROCHE-436179

PATIENT
  Age: 48 Year
  Sex: Female
  Weight: 74.8 kg

DRUGS (5)
  1. PEGASYS [Suspect]
     Dosage: 180 MCG/WEEK.
     Route: 058
     Dates: start: 20051014, end: 20060128
  2. COPEGUS [Suspect]
     Route: 048
     Dates: start: 20051014, end: 20060128
  3. RESTORIL [Concomitant]
     Indication: INSOMNIA
     Dosage: TAKEN AT NIGHT AS NEEDED
     Route: 048
  4. ATIVAN [Concomitant]
     Indication: ANXIETY
     Route: 048
  5. FIORICET [Concomitant]
     Indication: HEADACHE
     Route: 048

REACTIONS (19)
  - ALOPECIA [None]
  - ARTHRALGIA [None]
  - ASTHENIA [None]
  - BREAST CYST [None]
  - CHILLS [None]
  - DEPRESSION [None]
  - DIARRHOEA [None]
  - FATIGUE [None]
  - HYPERSENSITIVITY [None]
  - INSOMNIA [None]
  - LOSS OF CONSCIOUSNESS [None]
  - NAUSEA [None]
  - PAIN [None]
  - PYREXIA [None]
  - SKIN ULCER [None]
  - SYNCOPE [None]
  - VOMITING [None]
  - WEIGHT DECREASED [None]
  - WHITE BLOOD CELL COUNT DECREASED [None]
